FAERS Safety Report 5907702-6 (Version None)
Quarter: 2008Q4

REPORT INFORMATION
  Report Type: 
  Country: None (occurrence: None)
  Receive Date: 20081003
  Receipt Date: 20041208
  Transmission Date: 20090506
  Serious: Yes (Death, Hospitalization)
  Sender: FDA-Public Use
  Company Number: US-ROCHE-388631

PATIENT
  Sex: Male
  Weight: 97.5 kg

DRUGS (7)
  1. PEGASYS [Suspect]
     Indication: HEPATITIS C
     Route: 058
  2. RIBAVIRIN [Suspect]
     Indication: HEPATITIS C
     Route: 048
     Dates: start: 20040810
  3. PEG-INTRON [Suspect]
     Indication: HEPATITIS C
     Dosage: FORM: INJECTABLE POWDER
     Route: 058
     Dates: start: 20040810
  4. REBETOL [Suspect]
     Indication: HEPATITIS C
     Route: 065
  5. ACYCLOVIR [Concomitant]
     Route: 048
  6. HYDROXYZINE HYDROCHLORIDE [Concomitant]
     Route: 048
  7. OXAZEPAM [Concomitant]
     Route: 048

REACTIONS (2)
  - DEATH [None]
  - PERICARDITIS [None]
